FAERS Safety Report 5627721-7 (Version None)
Quarter: 2008Q1

REPORT INFORMATION
  Report Type: 
  Country: None (occurrence: None)
  Receive Date: 20080215
  Receipt Date: 20080204
  Transmission Date: 20080703
  Serious: Yes (Hospitalization)
  Sender: FDA-Public Use
  Company Number: JP-ASTRAZENECA-2008AP00476

PATIENT
  Age: 72 Year
  Sex: Male
  Weight: 61 kg

DRUGS (9)
  1. CRESTOR [Suspect]
     Indication: HYPERLIPIDAEMIA
     Route: 048
     Dates: start: 20070501, end: 20071207
  2. ANAESTHESIA [Suspect]
  3. ASPIRIN [Concomitant]
     Route: 048
     Dates: start: 20070501
  4. FRANDOL S [Concomitant]
     Route: 062
     Dates: start: 20070501
  5. SIGMART [Concomitant]
     Route: 048
     Dates: start: 20070501
  6. NORVASC [Concomitant]
     Route: 048
     Dates: start: 20070501
  7. KERLONG [Concomitant]
     Route: 048
     Dates: start: 20070501
  8. GLYBURIDE [Concomitant]
     Route: 048
     Dates: start: 20070501
  9. BASEN OD [Concomitant]
     Route: 048
     Dates: start: 20070501

REACTIONS (1)
  - LIVER DISORDER [None]
